FAERS Safety Report 10606316 (Version 1)
Quarter: 2014Q4

REPORT INFORMATION
  Report Type: Spontaneous
  Country: HU (occurrence: None)
  Receive Date: 20141121
  Receipt Date: 20141121
  Transmission Date: 20150529
  Serious: No
  Sender: FDA-Public Use
  Company Number: 1500358

PATIENT
  Age: 55 Year
  Sex: Female

DRUGS (3)
  1. UNKNOWN ANTIDEPRESSANT DRUGS [Concomitant]
     Active Substance: UNSPECIFIED INGREDIENT
  2. ALPRAZOLAM (NON-SPECIFIC) [Suspect]
     Active Substance: ALPRAZOLAM
     Indication: PANIC DISORDER
  3. ALPRAZOLAM. [Concomitant]
     Active Substance: ALPRAZOLAM

REACTIONS (6)
  - Quality of life decreased [None]
  - Drug dependence [None]
  - Drug effect decreased [None]
  - Drug withdrawal syndrome [None]
  - Pseudophaeochromocytoma [None]
  - Loss of consciousness [None]

NARRATIVE: CASE EVENT DATE: 200401
